FAERS Safety Report 10195196 (Version 2)
Quarter: 2014Q2

REPORT INFORMATION
  Report Type: Spontaneous
  Country: US (occurrence: US)
  Receive Date: 20140526
  Receipt Date: 20140627
  Transmission Date: 20141212
  Serious: Yes (Hospitalization, Other)
  Sender: FDA-Public Use
  Company Number: US-ELI_LILLY_AND_COMPANY-US201405005247

PATIENT
  Age: 57 Year
  Sex: Male
  Weight: 73.47 kg

DRUGS (12)
  1. CIALIS [Suspect]
     Indication: GENITAL ATROPHY
     Dosage: 20 MG, PRN
     Route: 048
     Dates: start: 20130605
  2. PROVENGE [Suspect]
     Indication: PROSTATE CANCER METASTATIC
     Dosage: 250 ML, SINGLE
     Route: 042
     Dates: start: 20131028
  3. PROVENGE [Suspect]
     Dosage: 250 MG, SINGLE
     Route: 042
     Dates: start: 20131111
  4. PROVENGE [Suspect]
     Dosage: 250 MG, SINGLE
     Route: 042
     Dates: start: 20131125
  5. IPILIMUMAB [Suspect]
     Indication: PROSTATE CANCER METASTATIC
     Dosage: 75 MG, SINGLE
     Route: 042
     Dates: start: 20131204
  6. IPILIMUMAB [Suspect]
     Dosage: 75 MG, SINGLE
     Route: 042
     Dates: start: 20131223
  7. LUPRON [Concomitant]
  8. CALCIUM CITRATE [Concomitant]
  9. XGEVA [Concomitant]
     Dosage: UNK
  10. FINASTERIDE [Concomitant]
  11. INSPRA [Concomitant]
  12. NORCO [Concomitant]

REACTIONS (3)
  - Cerebrovascular accident [Recovered/Resolved]
  - Acute myocardial infarction [Recovered/Resolved]
  - Anaemia [Recovered/Resolved]
